FAERS Safety Report 6266663-3 (Version None)
Quarter: 2009Q3

REPORT INFORMATION
  Report Type: 
  Country: None (occurrence: None)
  Receive Date: 20090709
  Receipt Date: 20090619
  Transmission Date: 20100115
  Serious: Yes (Other)
  Sender: FDA-Public Use
  Company Number: JPI-P-007755

PATIENT
  Age: 22 Year
  Sex: Male

DRUGS (7)
  1. LUVOX [Suspect]
     Indication: DRUG USE FOR UNKNOWN INDICATION
     Dosage: 200 MG (200 MG, 1 IN 1 D), ORAL; (1000 MG, ONCE), ORAL; 200 MG (200 MG, 1 IN 1 D), ORAL
     Route: 048
     Dates: start: 20090512, end: 20090512
  2. LUVOX [Suspect]
     Indication: DRUG USE FOR UNKNOWN INDICATION
     Dosage: 200 MG (200 MG, 1 IN 1 D), ORAL; (1000 MG, ONCE), ORAL; 200 MG (200 MG, 1 IN 1 D), ORAL
     Route: 048
     Dates: start: 20090513, end: 20090513
  3. LUVOX [Suspect]
     Indication: DRUG USE FOR UNKNOWN INDICATION
     Dosage: 200 MG (200 MG, 1 IN 1 D), ORAL; (1000 MG, ONCE), ORAL; 200 MG (200 MG, 1 IN 1 D), ORAL
     Route: 048
     Dates: start: 20090101
  4. TRIAZOLAM [Concomitant]
  5. ZOPICLONE [Concomitant]
  6. LORAZEPAM [Concomitant]
  7. PAROXETINE HCL [Concomitant]

REACTIONS (2)
  - OVERDOSE [None]
  - PYROMANIA [None]
